FAERS Safety Report 14170455 (Version 1)
Quarter: 2017Q4

REPORT INFORMATION
  Report Type: Spontaneous
  Country: US (occurrence: None)
  Receive Date: 20171108
  Receipt Date: 20171108
  Transmission Date: 20180321
  Serious: Yes (Other)
  Sender: FDA-Public Use
  Company Number: None

PATIENT
  Age: 32 Year
  Sex: Female
  Weight: 56.7 kg

DRUGS (1)
  1. MOXIFLOXACIN 0.5% [Suspect]
     Active Substance: MOXIFLOXACIN
     Indication: PRODUCT USED FOR UNKNOWN INDICATION
     Dosage: 1 GTT 0.5% Q1H DROP
     Dates: start: 20171027

REACTIONS (3)
  - Eye irritation [None]
  - Drug ineffective [None]
  - Visual impairment [None]

NARRATIVE: CASE EVENT DATE: 20171028
